FAERS Safety Report 12489704 (Version 8)
Quarter: 2016Q3

REPORT INFORMATION
  Report Type: Spontaneous
  Country: GB (occurrence: GB)
  Receive Date: 20160622
  Receipt Date: 20160906
  Transmission Date: 20161109
  Serious: Yes (Life-Threatening, Hospitalization, Other)
  Sender: FDA-Public Use
  Company Number: GB-SA-2016SA095878

PATIENT
  Age: 67 Year
  Sex: Female
  Weight: 80 kg

DRUGS (15)
  1. DENOSUMAB [Concomitant]
     Active Substance: DENOSUMAB
     Indication: BONE DISORDER
     Dosage: EVERY 6 WEEKS
     Route: 065
  2. LETROZOLE. [Concomitant]
     Active Substance: LETROZOLE
     Indication: BREAST CANCER
     Route: 065
     Dates: start: 20151006
  3. HERCEPTIN [Concomitant]
     Active Substance: TRASTUZUMAB
     Indication: BREAST CANCER STAGE IV
     Route: 065
  4. CLEXANE [Suspect]
     Active Substance: ENOXAPARIN SODIUM
     Indication: DEEP VEIN THROMBOSIS
     Dosage: UNKNOWN?6 WEEK COURSE ENDED AFTER 32 DAYS?START DATE: (4 WEEKS BEFORE ADMISSION)
     Route: 058
     Dates: start: 20160317, end: 20160417
  5. CIPROFLOXACIN. [Suspect]
     Active Substance: CIPROFLOXACIN
     Indication: ANTIBIOTIC THERAPY
     Route: 065
  6. ZOMORPH [Concomitant]
     Active Substance: MORPHINE SULFATE
     Route: 065
  7. CLEXANE [Suspect]
     Active Substance: ENOXAPARIN SODIUM
     Indication: DEEP VEIN THROMBOSIS
     Dosage: UNKNOWN?6 WEEK COURSE ENDED AFTER 32 DAYS?START DATE: (4 WEEKS BEFORE ADMISSION)
     Route: 058
     Dates: start: 20160317, end: 20160417
  8. CLEXANE [Suspect]
     Active Substance: ENOXAPARIN SODIUM
     Indication: DEEP VEIN THROMBOSIS
     Dosage: UNKNOWN?6 WEEK COURSE ENDED AFTER 32 DAYS?START DATE: (4 WEEKS BEFORE ADMISSION)
     Route: 058
     Dates: start: 20160317, end: 20160417
  9. DOCETAXEL. [Concomitant]
     Active Substance: DOCETAXEL
     Indication: BREAST CANCER STAGE IV
     Route: 065
     Dates: end: 20160210
  10. PERTUZUMAB [Concomitant]
     Active Substance: PERTUZUMAB
     Indication: BREAST CANCER STAGE IV
     Route: 065
  11. OMEPRAZOLE. [Concomitant]
     Active Substance: OMEPRAZOLE
     Indication: GASTRIC DISORDER
     Route: 065
     Dates: start: 20151006
  12. CLEXANE [Suspect]
     Active Substance: ENOXAPARIN SODIUM
     Indication: DEEP VEIN THROMBOSIS
     Dosage: UNKNOWN?6 WEEK COURSE ENDED AFTER 32 DAYS?START DATE: (4 WEEKS BEFORE ADMISSION)
     Route: 058
     Dates: start: 20160317, end: 20160417
  13. CLEXANE [Suspect]
     Active Substance: ENOXAPARIN SODIUM
     Indication: DEEP VEIN THROMBOSIS
     Dosage: UNKNOWN?6 WEEK COURSE ENDED AFTER 32 DAYS?START DATE: (4 WEEKS BEFORE ADMISSION)
     Route: 058
     Dates: start: 20160317, end: 20160417
  14. ADCAL-D3 [Concomitant]
     Active Substance: CALCIUM CARBONATE\CHOLECALCIFEROL
     Indication: BONE DISORDER
     Route: 065
     Dates: start: 20151016
  15. PERJETA [Concomitant]
     Active Substance: PERTUZUMAB
     Indication: BREAST CANCER STAGE IV
     Route: 065

REACTIONS (12)
  - Dermatitis [Recovering/Resolving]
  - Skin haemorrhage [Recovering/Resolving]
  - Scab [Recovering/Resolving]
  - Tachycardia [Not Recovered/Not Resolved]
  - Skin erosion [Recovering/Resolving]
  - Burning sensation [Recovering/Resolving]
  - Blister [Recovering/Resolving]
  - Pain [Not Recovered/Not Resolved]
  - Stevens-Johnson syndrome [Recovering/Resolving]
  - Rash erythematous [Recovering/Resolving]
  - Protein deficiency [Unknown]
  - Erythema multiforme [Recovering/Resolving]
